FAERS Safety Report 12233591 (Version 3)
Quarter: 2016Q2

REPORT INFORMATION
  Report Type: Spontaneous
  Country: IT (occurrence: IT)
  Receive Date: 20160404
  Receipt Date: 20160411
  Transmission Date: 20160815
  Serious: Yes (Hospitalization)
  Sender: FDA-Public Use
  Company Number: IT-ROCHE-1736036

PATIENT
  Age: 75 Year
  Sex: Female
  Weight: 52 kg

DRUGS (4)
  1. SELEPARINA [Concomitant]
     Active Substance: NADROPARIN CALCIUM
     Dosage: ^9500 IU ANTI-XA / 1 ML SOLUTION FOR INJECTION^
     Route: 058
     Dates: start: 20150722
  2. FASLODEX [Concomitant]
     Active Substance: FULVESTRANT
     Dosage: 5 ML^ 2 PRE-FILLED SYRINGES + 2 SAFETY NEEDLES
     Route: 030
     Dates: start: 20110101
  3. BONDRONAT [Suspect]
     Active Substance: IBANDRONIC ACID
     Indication: PRODUCT USED FOR UNKNOWN INDICATION
     Dosage: 28 FILM-COATED TABLETS
     Route: 048
     Dates: start: 20100201, end: 20160303
  4. OROTRE [Concomitant]
     Dosage: ^500 MG + 400 I.U. TABLETS^
     Route: 048
     Dates: start: 20110101

REACTIONS (3)
  - Gingival pain [Not Recovered/Not Resolved]
  - Osteonecrosis of jaw [Not Recovered/Not Resolved]
  - Gingival bleeding [Not Recovered/Not Resolved]

NARRATIVE: CASE EVENT DATE: 20160303
